FAERS Safety Report 5354924-1 (Version None)
Quarter: 2007Q2

REPORT INFORMATION
  Report Type: 
  Country: None (occurrence: None)
  Receive Date: 20070516
  Receipt Date: 20061018
  Transmission Date: 20071010
  Serious: Yes (Other)
  Sender: FDA-Public Use
  Company Number: 2006122529

PATIENT
  Age: 22 Year
  Sex: Female

DRUGS (2)
  1. DEPO-PROVERA [Suspect]
     Indication: CONTRACEPTION
  2. ISOTRETINOIN [Concomitant]

REACTIONS (1)
  - UNINTENDED PREGNANCY [None]
